FAERS Safety Report 10256555 (Version 1)
Quarter: 2014Q2

REPORT INFORMATION
  Report Type: Report from Study
  Country: BR (occurrence: BR)
  Receive Date: 20140624
  Receipt Date: 20140624
  Transmission Date: 20141212
  Serious: Yes (Other)
  Sender: FDA-Public Use
  Company Number: BR-ABBVIE-14P-020-1250070-00

PATIENT
  Sex: Female
  Weight: 39 kg

DRUGS (10)
  1. HUMIRA [Suspect]
     Indication: RHEUMATOID ARTHRITIS
     Route: 058
     Dates: start: 2010
  2. FOLIC ACID/MELOXICAM/PREDNISONE/FAMOTIDINE [Concomitant]
     Indication: ARTHRITIS
     Dosage: FOLIC ACID 0.5MG/MELOXICAM10MG/PREDNISONE2.5MG/FAMOTIDINE 40MG
     Route: 048
     Dates: start: 2009, end: 201402
  3. METHOTREXATE [Concomitant]
     Indication: ARTHRITIS
     Route: 048
     Dates: start: 2009, end: 201402
  4. ATENOLOL [Concomitant]
     Indication: BLOOD PRESSURE ABNORMAL
     Route: 048
     Dates: start: 2007
  5. PROTOS [Concomitant]
     Indication: OSTEOPOROSIS
     Route: 048
     Dates: start: 2011
  6. VITAMIN D [Concomitant]
     Indication: OSTEOPOROSIS
     Route: 048
     Dates: start: 2011
  7. CALCIUM CARBONATE [Concomitant]
     Indication: OSTEOPOROSIS
     Route: 048
     Dates: start: 2011, end: 201402
  8. RIVOTRIL [Concomitant]
     Indication: INSOMNIA
     Route: 048
     Dates: start: 2010, end: 201402
  9. MELOXICAM [Concomitant]
     Indication: ARTHRITIS
     Route: 048
     Dates: start: 201402
  10. PREDNISONE [Concomitant]
     Indication: ARTHRITIS
     Route: 048
     Dates: start: 201402

REACTIONS (5)
  - Aneurysm [Unknown]
  - Bedridden [Not Recovered/Not Resolved]
  - Cerebrovascular accident [Not Recovered/Not Resolved]
  - Blood glucose increased [Unknown]
  - Blood cholesterol increased [Unknown]
